FAERS Safety Report 12310461 (Version 1)
Quarter: 2016Q2

REPORT INFORMATION
  Report Type: Spontaneous
  Country: US (occurrence: None)
  Receive Date: 20160426
  Receipt Date: 20160426
  Transmission Date: 20160815
  Serious: Yes (Hospitalization, Disabling)
  Sender: FDA-Public Use
  Company Number: US-ALSI-201600100

PATIENT
  Age: 48 Year
  Sex: Male

DRUGS (2)
  1. OXYGEN. [Concomitant]
     Active Substance: OXYGEN
  2. NITROUS OXIDE. [Suspect]
     Active Substance: NITROUS OXIDE
     Indication: DRUG ABUSE
     Route: 055

REACTIONS (7)
  - Constipation [None]
  - Drug abuse [None]
  - Erectile dysfunction [None]
  - Multiple sclerosis [None]
  - Bone marrow disorder [None]
  - Polyneuropathy [None]
  - Cerebral atrophy [None]
